FAERS Safety Report 25330836 (Version 1)
Quarter: 2025Q2

REPORT INFORMATION
  Report Type: Spontaneous
  Country: NL (occurrence: NL)
  Receive Date: 20250519
  Receipt Date: 20250519
  Transmission Date: 20250716
  Serious: Yes (Death)
  Sender: MYLAN
  Company Number: None

PATIENT
  Age: 83 Year
  Sex: Female
  Weight: 62 kg

DRUGS (56)
  1. TICAGRELOR [Interacting]
     Active Substance: TICAGRELOR
     Indication: Chest pain
     Dosage: 90 MILLIGRAM, BID,2 X PER DAY 1 PIECE
     Dates: start: 20250207
  2. TICAGRELOR [Interacting]
     Active Substance: TICAGRELOR
     Indication: Acute myocardial infarction
     Dosage: 90 MILLIGRAM, BID,2 X PER DAY 1 PIECE
     Route: 048
     Dates: start: 20250207
  3. TICAGRELOR [Interacting]
     Active Substance: TICAGRELOR
     Dosage: 90 MILLIGRAM, BID,2 X PER DAY 1 PIECE
     Route: 048
     Dates: start: 20250207
  4. TICAGRELOR [Interacting]
     Active Substance: TICAGRELOR
     Dosage: 90 MILLIGRAM, BID,2 X PER DAY 1 PIECE
     Dates: start: 20250207
  5. ROSUVASTATIN [Interacting]
     Active Substance: ROSUVASTATIN
     Indication: Hypercholesterolaemia
     Dosage: 40 MILLIGRAM, QD,1 X PER DAY 1 PIECE
     Dates: start: 20250217, end: 20250314
  6. ROSUVASTATIN [Interacting]
     Active Substance: ROSUVASTATIN
     Dosage: 40 MILLIGRAM, QD,1 X PER DAY 1 PIECE
     Route: 048
     Dates: start: 20250217, end: 20250314
  7. ROSUVASTATIN [Interacting]
     Active Substance: ROSUVASTATIN
     Dosage: 40 MILLIGRAM, QD,1 X PER DAY 1 PIECE
     Route: 048
     Dates: start: 20250217, end: 20250314
  8. ROSUVASTATIN [Interacting]
     Active Substance: ROSUVASTATIN
     Dosage: 40 MILLIGRAM, QD,1 X PER DAY 1 PIECE
     Dates: start: 20250217, end: 20250314
  9. Isosorbidedinitraat [Concomitant]
  10. Isosorbidedinitraat [Concomitant]
     Route: 060
  11. Isosorbidedinitraat [Concomitant]
     Route: 060
  12. Isosorbidedinitraat [Concomitant]
  13. PERINDOPRIL ERBUMINE [Concomitant]
     Active Substance: PERINDOPRIL ERBUMINE
  14. PERINDOPRIL ERBUMINE [Concomitant]
     Active Substance: PERINDOPRIL ERBUMINE
     Route: 048
  15. PERINDOPRIL ERBUMINE [Concomitant]
     Active Substance: PERINDOPRIL ERBUMINE
     Route: 048
  16. PERINDOPRIL ERBUMINE [Concomitant]
     Active Substance: PERINDOPRIL ERBUMINE
  17. METOPROLOL [Concomitant]
     Active Substance: METOPROLOL
  18. METOPROLOL [Concomitant]
     Active Substance: METOPROLOL
     Route: 048
  19. METOPROLOL [Concomitant]
     Active Substance: METOPROLOL
     Route: 048
  20. METOPROLOL [Concomitant]
     Active Substance: METOPROLOL
  21. DIAZEPAM [Concomitant]
     Active Substance: DIAZEPAM
  22. DIAZEPAM [Concomitant]
     Active Substance: DIAZEPAM
     Route: 048
  23. DIAZEPAM [Concomitant]
     Active Substance: DIAZEPAM
     Route: 048
  24. DIAZEPAM [Concomitant]
     Active Substance: DIAZEPAM
  25. ISOSORBIDE MONONITRATE [Concomitant]
     Active Substance: ISOSORBIDE MONONITRATE
  26. ISOSORBIDE MONONITRATE [Concomitant]
     Active Substance: ISOSORBIDE MONONITRATE
     Route: 048
  27. ISOSORBIDE MONONITRATE [Concomitant]
     Active Substance: ISOSORBIDE MONONITRATE
     Route: 048
  28. ISOSORBIDE MONONITRATE [Concomitant]
     Active Substance: ISOSORBIDE MONONITRATE
  29. ASPIRIN [Concomitant]
     Active Substance: ASPIRIN
  30. ASPIRIN [Concomitant]
     Active Substance: ASPIRIN
     Route: 048
  31. ASPIRIN [Concomitant]
     Active Substance: ASPIRIN
     Route: 048
  32. ASPIRIN [Concomitant]
     Active Substance: ASPIRIN
  33. PANTOPRAZOLE SODIUM [Concomitant]
     Active Substance: PANTOPRAZOLE SODIUM
  34. PANTOPRAZOLE SODIUM [Concomitant]
     Active Substance: PANTOPRAZOLE SODIUM
     Route: 048
  35. PANTOPRAZOLE SODIUM [Concomitant]
     Active Substance: PANTOPRAZOLE SODIUM
     Route: 048
  36. PANTOPRAZOLE SODIUM [Concomitant]
     Active Substance: PANTOPRAZOLE SODIUM
  37. HYDROCHLOROTHIAZIDE [Concomitant]
     Active Substance: HYDROCHLOROTHIAZIDE
  38. HYDROCHLOROTHIAZIDE [Concomitant]
     Active Substance: HYDROCHLOROTHIAZIDE
     Route: 048
  39. HYDROCHLOROTHIAZIDE [Concomitant]
     Active Substance: HYDROCHLOROTHIAZIDE
     Route: 048
  40. HYDROCHLOROTHIAZIDE [Concomitant]
     Active Substance: HYDROCHLOROTHIAZIDE
  41. TIOTROPIUM [Concomitant]
     Active Substance: TIOTROPIUM
  42. TIOTROPIUM [Concomitant]
     Active Substance: TIOTROPIUM
     Route: 055
  43. TIOTROPIUM [Concomitant]
     Active Substance: TIOTROPIUM
     Route: 055
  44. TIOTROPIUM [Concomitant]
     Active Substance: TIOTROPIUM
  45. OXAZEPAM [Concomitant]
     Active Substance: OXAZEPAM
  46. OXAZEPAM [Concomitant]
     Active Substance: OXAZEPAM
     Route: 048
  47. OXAZEPAM [Concomitant]
     Active Substance: OXAZEPAM
     Route: 048
  48. OXAZEPAM [Concomitant]
     Active Substance: OXAZEPAM
  49. DOMPERIDONE [Concomitant]
     Active Substance: DOMPERIDONE
  50. DOMPERIDONE [Concomitant]
     Active Substance: DOMPERIDONE
     Route: 048
  51. DOMPERIDONE [Concomitant]
     Active Substance: DOMPERIDONE
     Route: 048
  52. DOMPERIDONE [Concomitant]
     Active Substance: DOMPERIDONE
  53. BECLOMETHASONE DIPROPIONATE [Concomitant]
     Active Substance: BECLOMETHASONE DIPROPIONATE
  54. BECLOMETHASONE DIPROPIONATE [Concomitant]
     Active Substance: BECLOMETHASONE DIPROPIONATE
     Route: 055
  55. BECLOMETHASONE DIPROPIONATE [Concomitant]
     Active Substance: BECLOMETHASONE DIPROPIONATE
     Route: 055
  56. BECLOMETHASONE DIPROPIONATE [Concomitant]
     Active Substance: BECLOMETHASONE DIPROPIONATE

REACTIONS (2)
  - Rhabdomyolysis [Fatal]
  - Drug interaction [Fatal]
